FAERS Safety Report 25603761 (Version 1)
Quarter: 2025Q3

REPORT INFORMATION
  Report Type: Spontaneous
  Country: US (occurrence: US)
  Receive Date: 20250725
  Receipt Date: 20250725
  Transmission Date: 20251021
  Serious: Yes (Other)
  Sender: JOHNSON AND JOHNSON
  Company Number: US-JNJFOC-20250726811

PATIENT
  Age: 57 Year
  Sex: Female

DRUGS (1)
  1. TREMFYA [Suspect]
     Active Substance: GUSELKUMAB
     Indication: Crohn^s disease
     Route: 058
     Dates: start: 20250627

REACTIONS (3)
  - Rectal haemorrhage [Not Recovered/Not Resolved]
  - Nausea [Unknown]
  - Defaecation urgency [Not Recovered/Not Resolved]
